FAERS Safety Report 8880421 (Version 3)
Quarter: 2015Q3

REPORT INFORMATION
  Report Type: Spontaneous
  Country: US (occurrence: US)
  Receive Date: 20121031
  Receipt Date: 20150812
  Transmission Date: 20151125
  Serious: Yes (Hospitalization, Other)
  Sender: FDA-Public Use
  Company Number: US-ASTRAZENECA-2012SE80338

PATIENT
  Age: 67 Year
  Sex: Female
  Weight: 88 kg

DRUGS (4)
  1. NEXIUM [Suspect]
     Active Substance: ESOMEPRAZOLE MAGNESIUM
     Indication: GASTROOESOPHAGEAL REFLUX DISEASE
     Route: 048
     Dates: start: 2013
  2. NEXIUM [Suspect]
     Active Substance: ESOMEPRAZOLE MAGNESIUM
     Indication: GASTROOESOPHAGEAL REFLUX DISEASE
     Route: 048
     Dates: start: 2011
  3. NEXIUM [Suspect]
     Active Substance: ESOMEPRAZOLE MAGNESIUM
     Indication: GASTROOESOPHAGEAL REFLUX DISEASE
     Route: 048
     Dates: start: 2011
  4. NEXIUM [Suspect]
     Active Substance: ESOMEPRAZOLE MAGNESIUM
     Indication: GASTROOESOPHAGEAL REFLUX DISEASE
     Route: 048
     Dates: start: 2013

REACTIONS (11)
  - Pain [Recovered/Resolved]
  - Dysphonia [Recovered/Resolved]
  - Sleep disorder due to general medical condition, insomnia type [Recovered/Resolved]
  - Muscle disorder [Recovered/Resolved]
  - Dysstasia [Recovered/Resolved]
  - Speech disorder [Unknown]
  - Muscle spasms [Recovered/Resolved]
  - Abasia [Recovered/Resolved]
  - Headache [Recovered/Resolved]
  - Thyroid disorder [Unknown]
  - Regurgitation [Recovered/Resolved]
